FAERS Safety Report 7490728-1 (Version None)
Quarter: 2011Q2

REPORT INFORMATION
  Report Type: 
  Country: None (occurrence: None)
  Receive Date: 20110519
  Receipt Date: 20100119
  Transmission Date: 20111010
  Serious: Yes (Hospitalization, Other)
  Sender: FDA-Public Use
  Company Number: US-BAYER-201016798NA

PATIENT
  Age: 63 Year
  Sex: Female
  Weight: 70 kg

DRUGS (4)
  1. NITROGLYCERIN [Concomitant]
     Dosage: UNK
     Dates: start: 19890101
  2. ISOSORBIDE DINITRATE [Concomitant]
     Dosage: UNK
     Dates: start: 19890101
  3. INSULIN [Concomitant]
     Dosage: UNK
     Dates: start: 19890101
  4. TRASYLOL [Suspect]
     Indication: CORONARY ARTERY BYPASS
     Dosage: UNK
     Route: 042
     Dates: start: 20051107

REACTIONS (11)
  - RENAL IMPAIRMENT [None]
  - MULTI-ORGAN FAILURE [None]
  - ANXIETY [None]
  - RENAL INJURY [None]
  - GALLBLADDER DISORDER [None]
  - STRESS [None]
  - RENAL FAILURE [None]
  - INJURY [None]
  - FEAR [None]
  - DEPRESSION [None]
  - PAIN [None]
